FAERS Safety Report 13360360 (Version 2)
Quarter: 2017Q2

REPORT INFORMATION
  Report Type: Spontaneous
  Country: US (occurrence: US)
  Receive Date: 20170322
  Receipt Date: 20170427
  Transmission Date: 20170830
  Serious: No
  Sender: FDA-Public Use
  Company Number: US-PFIZER INC-2017114131

PATIENT
  Age: 72 Year
  Sex: Female
  Weight: 65.31 kg

DRUGS (11)
  1. SYNTHROID [Concomitant]
     Active Substance: LEVOTHYROXINE SODIUM
     Indication: THYROID DISORDER
     Dosage: 0.75 UG, 1X/DAY, (IN THE MORNING)
     Route: 048
     Dates: start: 20120103
  2. ESCITALOPRAM [Concomitant]
     Active Substance: ESCITALOPRAM OXALATE
     Indication: ANXIETY
     Dosage: 5 MG, 2X/DAY (10MG, HALF A PILL BY MOUTH IN THE MORNING AND EVENING)
     Route: 048
     Dates: start: 20150925
  3. ROSUVASTATIN. [Concomitant]
     Active Substance: ROSUVASTATIN
     Indication: BLOOD CHOLESTEROL INCREASED
     Dosage: 10 MG, UNK
     Route: 048
  4. BABY ASPIRIN [Concomitant]
     Active Substance: ASPIRIN
     Indication: ARTERIAL DISORDER
     Dosage: 162 MG, 1X/DAY (EVERY MORNING)
     Route: 048
  5. KRILL OMEGA 3 [Concomitant]
     Indication: EYE DISORDER
     Dosage: 300 MG, 1X/DAY, (AT LUNCH)
     Dates: start: 20170220
  6. FENTANYL. [Concomitant]
     Active Substance: FENTANYL
     Indication: PAIN
     Dosage: 50 UG, UNK, (PATCH ONE EVERY THREE DAYS)
     Dates: start: 20160728
  7. BROMSITE 0.075% [Concomitant]
     Active Substance: BROMFENAC SODIUM
     Indication: EYE DISORDER
     Dosage: 1 GTT, 2X/DAY, (ONE IN THE MORNING AND THE EVENING)
     Dates: end: 20170220
  8. METFORMIN [Concomitant]
     Active Substance: METFORMIN HYDROCHLORIDE
     Indication: DIABETES MELLITUS
     Dosage: 100 MG, 2X/DAY, (100MG BY MOUTH IN THE MORNING AND EVENING)
     Route: 048
     Dates: start: 20160722
  9. LYRICA [Suspect]
     Active Substance: PREGABALIN
     Dosage: 300 MG, 3X/DAY
     Route: 048
     Dates: start: 20170202
  10. ROSUVASTATIN. [Concomitant]
     Active Substance: ROSUVASTATIN
     Indication: ARTERIAL DISORDER
     Dosage: 20 MG, DAILY
  11. LYRICA [Suspect]
     Active Substance: PREGABALIN
     Indication: BACK PAIN
     Dosage: 100 MG, 3X/DAY
     Dates: start: 201701

REACTIONS (4)
  - Weight increased [Unknown]
  - Blood glucose decreased [Not Recovered/Not Resolved]
  - Drug ineffective [Unknown]
  - Overdose [Unknown]

NARRATIVE: CASE EVENT DATE: 20170202
